FAERS Safety Report 23489907 (Version 2)
Quarter: 2025Q2

REPORT INFORMATION
  Report Type: Spontaneous
  Country: US (occurrence: US)
  Receive Date: 20240206
  Receipt Date: 20250416
  Transmission Date: 20250716
  Serious: No
  Sender: ROCHE
  Company Number: US-ROCHE-3398310

PATIENT
  Age: 70 Year
  Sex: Female

DRUGS (2)
  1. XOLAIR PFS [Suspect]
     Active Substance: OMALIZUMAB
     Indication: Idiopathic urticaria
     Dosage: FREQUENCY TEXT:OTHER?INJECT 300MG (2 SYRINGES) ?SUBCUTANEOUSLY ONCE EVERY 4 WEEKS
     Route: 058
     Dates: start: 202106
  2. XOLAIR PFS [Suspect]
     Active Substance: OMALIZUMAB
     Indication: Rhinitis allergic
     Route: 058

REACTIONS (4)
  - COVID-19 [Not Recovered/Not Resolved]
  - Bone pain [Unknown]
  - Hyperhidrosis [Unknown]
  - Feeling cold [Unknown]

NARRATIVE: CASE EVENT DATE: 20230709
